FAERS Safety Report 7647786-0 (Version None)
Quarter: 2011Q3

REPORT INFORMATION
  Report Type: 
  Country: None (occurrence: None)
  Receive Date: 20110801
  Receipt Date: 20110728
  Transmission Date: 20111222
  Serious: Yes (Hospitalization, Other)
  Sender: FDA-Public Use
  Company Number: NL-BRISTOL-MYERS SQUIBB COMPANY-15669542

PATIENT
  Age: 57 Year
  Sex: Male

DRUGS (6)
  1. PRIMPERAN TAB [Concomitant]
     Dates: start: 20110405
  2. ORAMORPH SR [Concomitant]
     Dates: start: 20110415, end: 20110616
  3. CAPECITABINE [Suspect]
     Indication: METASTATIC GASTRIC CANCER
     Dosage: INTERRUPTED ON 12APR11; RESTARTED ON 15APR11
     Route: 048
     Dates: start: 20110405, end: 20110525
  4. ONDANSETRON [Concomitant]
     Dates: start: 20110405
  5. BMS833923 [Suspect]
     Indication: METASTATIC GASTRIC CANCER
     Dosage: INTERRUPTED ON 12APR11; RESTARTED 15APR11-UNK
     Route: 048
     Dates: start: 20110322, end: 20110531
  6. CISPLATIN [Suspect]
     Indication: METASTATIC GASTRIC CANCER
     Route: 042
     Dates: start: 20110405, end: 20110511

REACTIONS (3)
  - LIPASE INCREASED [None]
  - ILEUS [None]
  - NAUSEA [None]
